FAERS Safety Report 9500271 (Version 4)
Quarter: 2014Q2

REPORT INFORMATION
  Report Type: Spontaneous
  Country: US (occurrence: None)
  Receive Date: 20130903
  Receipt Date: 20140411
  Transmission Date: 20141212
  Serious: Yes (Hospitalization)
  Sender: FDA-Public Use
  Company Number: 2013US002354

PATIENT
  Age: 43 Year
  Sex: Female
  Weight: 74 kg

DRUGS (10)
  1. ICLUSIG (PONATINIB) TABLET, 45 MG [Suspect]
     Indication: CHRONIC MYELOID LEUKAEMIA
     Route: 048
     Dates: start: 20130611
  2. POTASSIUM (POTASSIUM) [Concomitant]
  3. ACYCLOVIR (ACYCLOVIR) [Concomitant]
  4. WELLBUTRIN (BUPROPION HYDROCHLORIDE) [Concomitant]
  5. LEVAQUIN (LEVOFLOXACIN) [Concomitant]
  6. ATIVAN (LORAZEPAM) [Concomitant]
  7. PROTONIX (PANTOPRAZOLE SODIUM SESQUIHYDRATE) [Concomitant]
  8. VORICONAZOLE (VORICONAZOLE) [Concomitant]
  9. AMICAR (AMINOCAPROIC ACID) [Concomitant]
  10. HYDREA (HYDROXYCARBAMIDE) [Concomitant]

REACTIONS (15)
  - Blast crisis in myelogenous leukaemia [None]
  - Full blood count decreased [None]
  - Pyrexia [None]
  - Pancytopenia [None]
  - Neutrophilic panniculitis [None]
  - Pulmonary mass [None]
  - Infusion site pain [None]
  - Infusion site erythema [None]
  - Wound [None]
  - Somnolence [None]
  - Abdominal pain [None]
  - Pain in extremity [None]
  - Fatigue [None]
  - Decreased appetite [None]
  - Nausea [None]
